FAERS Safety Report 24532706 (Version 2)
Quarter: 2025Q3

REPORT INFORMATION
  Report Type: Spontaneous
  Country: EU (occurrence: EU)
  Receive Date: 20241022
  Receipt Date: 20250709
  Transmission Date: 20251021
  Serious: Yes (Hospitalization)
  Sender: RANBAXY
  Company Number: EU-AEMPS-1564836

PATIENT
  Age: 86 Year
  Sex: Female
  Weight: 56.4 kg

DRUGS (1)
  1. CLOPIDOGREL [Suspect]
     Active Substance: CLOPIDOGREL BISULFATE
     Indication: Carotid artery stenosis
     Dosage: 75MG/24H
     Route: 048
     Dates: start: 20220801, end: 20240729

REACTIONS (4)
  - Duodenal ulcer [Recovered/Resolved]
  - Gastritis erosive [Recovered/Resolved]
  - Upper gastrointestinal haemorrhage [Recovered/Resolved]
  - Anaemia [Recovering/Resolving]

NARRATIVE: CASE EVENT DATE: 20240729
